FAERS Safety Report 8958805 (Version 1)
Quarter: 2012Q4

REPORT INFORMATION
  Report Type: 
  Country: US (occurrence: US)
  Receive Date: 20121212
  Receipt Date: 20121212
  Transmission Date: 20130627
  Serious: Yes (Hospitalization)
  Sender: FDA-Public Use
  Company Number: US-BAYER-2012-129886

PATIENT
  Age: 21 Year
  Sex: Female
  Weight: 63.04 kg

DRUGS (3)
  1. YASMIN [Suspect]
     Dosage: UNK
     Dates: start: 2001, end: 2011
  2. OCELLA [Suspect]
     Dosage: UNK
     Dates: start: 2001, end: 2011
  3. YAZ [Suspect]
     Dosage: UNK
     Dates: start: 2001, end: 2011

REACTIONS (1)
  - Cholecystectomy [None]
